FAERS Safety Report 11732749 (Version 1)
Quarter: 2015Q4

REPORT INFORMATION
  Report Type: Spontaneous
  Country: US (occurrence: US)
  Receive Date: 20151110
  Receipt Date: 20151110
  Transmission Date: 20160304
  Serious: No
  Sender: FDA-Public Use
  Company Number: US-ELI_LILLY_AND_COMPANY-US201202008266

PATIENT
  Age: 74 Year
  Sex: Female

DRUGS (2)
  1. FORTEO [Suspect]
     Active Substance: TERIPARATIDE
     Indication: OSTEOPOROSIS
     Dosage: 20 UG, QD
     Route: 058
     Dates: start: 20110715
  2. FORTEO [Suspect]
     Active Substance: TERIPARATIDE
     Dosage: 20 UG, QD

REACTIONS (12)
  - Pain [Unknown]
  - Bone pain [Unknown]
  - Visual impairment [Unknown]
  - Headache [Unknown]
  - Nausea [Unknown]
  - Intentional product misuse [Unknown]
  - Feeling abnormal [Unknown]
  - Adverse event [Unknown]
  - Pain in jaw [Unknown]
  - Malaise [Unknown]
  - Arthralgia [Unknown]
  - Hearing impaired [Unknown]
